FAERS Safety Report 11997602 (Version 3)
Quarter: 2016Q3

REPORT INFORMATION
  Report Type: Spontaneous
  Country: AT (occurrence: AT)
  Receive Date: 20160203
  Receipt Date: 20160729
  Transmission Date: 20161109
  Serious: Yes (Other)
  Sender: FDA-Public Use
  Company Number: AT-ELI_LILLY_AND_COMPANY-AT201601010982

PATIENT
  Age: 20 Year
  Sex: Female

DRUGS (26)
  1. FLUCTINE [Interacting]
     Active Substance: FLUOXETINE HYDROCHLORIDE
     Dosage: 60 MG, QD
     Route: 065
     Dates: start: 20151211, end: 201512
  2. NOZINAN                            /00038601/ [Interacting]
     Active Substance: LEVOMEPROMAZINE
     Indication: PRODUCT USED FOR UNKNOWN INDICATION
     Dosage: 100 MG, UNKNOWN
     Route: 065
     Dates: start: 20151014, end: 20151124
  3. TRITTICO [Suspect]
     Active Substance: TRAZODONE HYDROCHLORIDE
     Dosage: 250 MG, UNKNOWN
     Route: 065
     Dates: start: 20151120, end: 20151129
  4. NOZINAN                            /00038601/ [Interacting]
     Active Substance: LEVOMEPROMAZINE
     Dosage: 200 MG, UNKNOWN
     Route: 065
     Dates: start: 20151124, end: 20151206
  5. ABILIFY [Interacting]
     Active Substance: ARIPIPRAZOLE
     Dosage: 10 MG, UNKNOWN
     Route: 065
     Dates: start: 20151208, end: 20151209
  6. ZOLPIDEM [Suspect]
     Active Substance: ZOLPIDEM\ZOLPIDEM TARTRATE
     Indication: PRODUCT USED FOR UNKNOWN INDICATION
     Dosage: 10 MG, UNKNOWN
     Route: 065
     Dates: start: 20151105, end: 20151113
  7. TRITTICO [Suspect]
     Active Substance: TRAZODONE HYDROCHLORIDE
     Dosage: 300 MG, UNKNOWN
     Route: 065
     Dates: start: 20151221
  8. PSYCHOPAX [Suspect]
     Active Substance: DIAZEPAM
     Dosage: 20 MG, UNKNOWN
     Route: 065
     Dates: start: 20151214
  9. ABILIFY [Interacting]
     Active Substance: ARIPIPRAZOLE
     Indication: PRODUCT USED FOR UNKNOWN INDICATION
     Dosage: 10 MG, UNKNOWN
     Route: 065
     Dates: start: 20151117, end: 20151124
  10. ABILIFY [Interacting]
     Active Substance: ARIPIPRAZOLE
     Dosage: 20 MG, UNKNOWN
     Route: 065
     Dates: start: 20151125, end: 20151207
  11. ABILIFY [Interacting]
     Active Substance: ARIPIPRAZOLE
     Dosage: 30 MG, QD
     Route: 065
     Dates: start: 20151226
  12. PSYCHOPAX [Suspect]
     Active Substance: DIAZEPAM
     Dosage: 20 MG, UNKNOWN
     Route: 065
     Dates: start: 20151206, end: 20151207
  13. NOZINAN                            /00038601/ [Interacting]
     Active Substance: LEVOMEPROMAZINE
     Dosage: 100 MG, UNKNOWN
     Route: 065
     Dates: start: 20151207, end: 20151207
  14. ABILIFY [Interacting]
     Active Substance: ARIPIPRAZOLE
     Dosage: 20 MG, QD
     Route: 065
     Dates: start: 20151210, end: 20151225
  15. TRITTICO [Suspect]
     Active Substance: TRAZODONE HYDROCHLORIDE
     Indication: PRODUCT USED FOR UNKNOWN INDICATION
     Dosage: 150 MG, UNKNOWN
     Route: 065
     Dates: start: 20151112, end: 20151119
  16. PSYCHOPAX [Suspect]
     Active Substance: DIAZEPAM
     Indication: PRODUCT USED FOR UNKNOWN INDICATION
     Dosage: 15 MG, UNKNOWN
     Route: 065
     Dates: start: 20151117, end: 20151129
  17. PSYCHOPAX [Suspect]
     Active Substance: DIAZEPAM
     Dosage: 30 MG, UNKNOWN
     Route: 065
     Dates: start: 20151208, end: 20151213
  18. ZOLPIDEM [Suspect]
     Active Substance: ZOLPIDEM\ZOLPIDEM TARTRATE
     Dosage: 20 MG, UNKNOWN
     Route: 065
     Dates: start: 20151114
  19. TRITTICO [Suspect]
     Active Substance: TRAZODONE HYDROCHLORIDE
     Dosage: 200 MG, UNKNOWN
     Route: 065
     Dates: start: 20151130, end: 20151220
  20. FLUCTINE [Interacting]
     Active Substance: FLUOXETINE HYDROCHLORIDE
     Dosage: 40 MG, UNKNOWN
     Route: 065
     Dates: start: 20151208, end: 20151210
  21. FLUCTINE [Interacting]
     Active Substance: FLUOXETINE HYDROCHLORIDE
     Dosage: 20 MG, QD
     Route: 065
     Dates: start: 201512, end: 20151220
  22. PSYCHOPAX [Suspect]
     Active Substance: DIAZEPAM
     Dosage: 10 MG, UNKNOWN
     Route: 065
     Dates: start: 20151130, end: 20151205
  23. FLUCTINE [Suspect]
     Active Substance: FLUOXETINE HYDROCHLORIDE
     Indication: PRODUCT USED FOR UNKNOWN INDICATION
     Dosage: 80 MG, UNKNOWN
     Route: 065
     Dates: end: 20151207
  24. FLUCTINE [Interacting]
     Active Substance: FLUOXETINE HYDROCHLORIDE
     Dosage: 40 MG, UNKNOWN
     Route: 065
     Dates: start: 201512, end: 201512
  25. LAMOTRIGIN [Suspect]
     Active Substance: LAMOTRIGINE
     Indication: PRODUCT USED FOR UNKNOWN INDICATION
     Dosage: 100 MG, UNKNOWN
     Route: 065
     Dates: start: 20151014, end: 20151118
  26. LAMOTRIGIN [Suspect]
     Active Substance: LAMOTRIGINE
     Dosage: 200 MG, UNKNOWN
     Route: 065
     Dates: start: 20151119

REACTIONS (2)
  - Drug interaction [Unknown]
  - Pleurothotonus [Recovered/Resolved]

NARRATIVE: CASE EVENT DATE: 201512
